FAERS Safety Report 9510451 (Version 1)
Quarter: 2013Q3

REPORT INFORMATION
  Report Type: Spontaneous
  Country: ES (occurrence: ES)
  Receive Date: 20130909
  Receipt Date: 20130909
  Transmission Date: 20140515
  Serious: Yes (Other)
  Sender: FDA-Public Use
  Company Number: ES-PERRIGO-13ES008986

PATIENT
  Age: 46 Year
  Sex: Female

DRUGS (3)
  1. NAPROXEN RX 250 MG 121 [Suspect]
     Indication: ALLERGY TEST
     Dosage: 125 MG, SINGLE
     Route: 048
  2. NAPROXEN RX 250 MG 121 [Suspect]
     Dosage: 250 MG, SINGLE
     Route: 048
  3. NAPROXEN RX 250 MG 121 [Suspect]
     Dosage: 500 MG, SINGLE
     Route: 048

REACTIONS (1)
  - Angioedema [Recovered/Resolved]
